FAERS Safety Report 11590171 (Version 1)
Quarter: 2015Q4

REPORT INFORMATION
  Report Type: Spontaneous
  Country: GB (occurrence: GB)
  Receive Date: 20151002
  Receipt Date: 20151002
  Transmission Date: 20160304
  Serious: Yes (Disabling)
  Sender: FDA-Public Use
  Company Number: GB-CONCORDIA PHARMACEUTICALS INC.-CO-UX-UK-2015-034

PATIENT
  Age: 83 Year
  Sex: Male

DRUGS (7)
  1. XATRAL [Suspect]
     Active Substance: ALFUZOSIN
     Indication: PROSTATISM
     Route: 048
     Dates: start: 20150730, end: 20150812
  2. SIMVASTATIN. [Concomitant]
     Active Substance: SIMVASTATIN
  3. PERINDOPRIL [Concomitant]
     Active Substance: PERINDOPRIL
  4. LANSOPRAZOLE. [Concomitant]
     Active Substance: LANSOPRAZOLE
  5. CLOPIDOGREL [Concomitant]
     Active Substance: CLOPIDOGREL BISULFATE
  6. TAMSULOSIN HYDROCHLORIDE. [Concomitant]
     Active Substance: TAMSULOSIN HYDROCHLORIDE
  7. BEZAFIBRATE [Concomitant]
     Active Substance: BEZAFIBRATE

REACTIONS (8)
  - Platelet count decreased [Recovered/Resolved]
  - Rash macular [Recovered/Resolved]
  - Oedema peripheral [Not Recovered/Not Resolved]
  - Pruritus [Recovered/Resolved]
  - Anaemia [Recovered/Resolved]
  - Skin lesion [Recovered/Resolved]
  - Anaphylactic reaction [Recovered/Resolved with Sequelae]
  - White blood cell count decreased [Recovered/Resolved]

NARRATIVE: CASE EVENT DATE: 20150812
